FAERS Safety Report 13253907 (Version 1)
Quarter: 2017Q1

REPORT INFORMATION
  Report Type: Spontaneous
  Country: NO (occurrence: NO)
  Receive Date: 20170220
  Receipt Date: 20170220
  Transmission Date: 20170428
  Serious: Yes (Death, Life-Threatening, Hospitalization)
  Sender: FDA-Public Use
  Company Number: PHHY2017NO020723

PATIENT
  Age: 6 Decade
  Sex: Female

DRUGS (1)
  1. RIFAMPICIN [Suspect]
     Active Substance: RIFAMPIN
     Indication: WRONG DRUG ADMINISTERED
     Dosage: 600 MG, BID
     Route: 048
     Dates: start: 20161104, end: 20161116

REACTIONS (4)
  - Atrial fibrillation [Fatal]
  - Drug prescribing error [Fatal]
  - Product name confusion [Fatal]
  - Liver injury [Fatal]

NARRATIVE: CASE EVENT DATE: 20161104
